FAERS Safety Report 5214662-2 (Version None)
Quarter: 2007Q1

REPORT INFORMATION
  Report Type: 
  Country: None (occurrence: None)
  Receive Date: 20070122
  Receipt Date: 20070108
  Transmission Date: 20070707
  Serious: Yes (Other)
  Sender: FDA-Public Use
  Company Number: US-ELI_LILLY_AND_COMPANY-US200701001636

PATIENT
  Age: 49 Year
  Sex: Female

DRUGS (5)
  1. PROZAC [Suspect]
     Indication: BIPOLAR I DISORDER
     Dosage: 20 MG, UNKNOWN
     Route: 048
     Dates: start: 19860101
  2. PROZAC [Suspect]
     Dosage: 40 MG, UNKNOWN
     Route: 048
  3. PROZAC [Suspect]
     Dosage: 60 MG, UNKNOWN
     Route: 048
  4. RISPERDAL                               /SWE/ [Concomitant]
     Dosage: UNK, UNKNOWN
     Route: 065
     Dates: start: 20050101
  5. NEXIUM [Concomitant]
     Indication: DYSPEPSIA
     Dosage: UNK, UNKNOWN
     Route: 065

REACTIONS (2)
  - BREAST CANCER [None]
  - MASS [None]
